FAERS Safety Report 6324499-9 (Version None)
Quarter: 2009Q3

REPORT INFORMATION
  Report Type: 
  Country: None (occurrence: None)
  Receive Date: 20090824
  Receipt Date: 20090513
  Transmission Date: 20100115
  Serious: No
  Sender: FDA-Public Use
  Company Number: US-ABBOTT-09P-163-0573179-00

PATIENT
  Sex: Male

DRUGS (11)
  1. NIASPAN [Suspect]
     Indication: HIGH DENSITY LIPOPROTEIN DECREASED
     Dosage: HAS TAKEN WHOLE TAB, 1/2 TAB, AND 1/4 TAB AT BEDTIME
     Route: 048
  2. CRESTOR [Concomitant]
     Indication: DRUG USE FOR UNKNOWN INDICATION
     Route: 048
  3. ZETIA [Concomitant]
     Indication: DRUG USE FOR UNKNOWN INDICATION
  4. COLESTIPOL HYDROCHLORIDE [Concomitant]
     Indication: DRUG USE FOR UNKNOWN INDICATION
  5. HALCION [Concomitant]
     Indication: DRUG USE FOR UNKNOWN INDICATION
  6. COREG [Concomitant]
     Indication: DRUG USE FOR UNKNOWN INDICATION
  7. ALAPRAZOLOM [Concomitant]
     Indication: DRUG USE FOR UNKNOWN INDICATION
  8. AVODART [Concomitant]
     Indication: DRUG USE FOR UNKNOWN INDICATION
  9. COQ10 [Concomitant]
     Indication: DRUG USE FOR UNKNOWN INDICATION
  10. NORVASC [Concomitant]
     Indication: DRUG USE FOR UNKNOWN INDICATION
  11. TYLENOL (CAPLET) [Concomitant]
     Indication: DRUG USE FOR UNKNOWN INDICATION

REACTIONS (3)
  - ARTHRALGIA [None]
  - BODY TEMPERATURE INCREASED [None]
  - HYPERHIDROSIS [None]
